FAERS Safety Report 4600001-4 (Version None)
Quarter: 2005Q1

REPORT INFORMATION
  Report Type: 
  Country: None (occurrence: None)
  Receive Date: 20050303
  Receipt Date: 20050216
  Transmission Date: 20050727
  Serious: Yes (Other)
  Sender: FDA-Public Use
  Company Number: A-US2002-01225

PATIENT
  Age: 34 Year
  Sex: Male
  Weight: 66.2 kg

DRUGS (11)
  1. TRACLEER [Suspect]
     Indication: PULMONARY HYPERTENSION
     Dosage: SEE IMAGE
     Route: 048
     Dates: start: 20020729, end: 20020924
  2. TRACLEER [Suspect]
     Indication: PULMONARY HYPERTENSION
     Dosage: SEE IMAGE
     Route: 048
     Dates: start: 20020924, end: 20021008
  3. TRACLEER [Suspect]
     Indication: PULMONARY HYPERTENSION
     Dosage: SEE IMAGE
     Route: 048
     Dates: start: 20040825, end: 20040925
  4. TRACLEER [Suspect]
     Indication: PULMONARY HYPERTENSION
     Dosage: SEE IMAGE
     Route: 048
     Dates: start: 20040926, end: 20041006
  5. ALDACTONE [Concomitant]
  6. LASIX [Concomitant]
  7. VASOTEC [Concomitant]
  8. LANOXIN [Concomitant]
  9. UT-15 [Concomitant]
  10. REMODULIN [Concomitant]
  11. COUMADIN [Concomitant]

REACTIONS (5)
  - CYANOSIS [None]
  - FLUID RETENTION [None]
  - NERVOUSNESS [None]
  - OXYGEN SATURATION DECREASED [None]
  - PALPITATIONS [None]
